FAERS Safety Report 5962951-6 (Version None)
Quarter: 2008Q4

REPORT INFORMATION
  Report Type: 
  Country: None (occurrence: None)
  Receive Date: 20081124
  Receipt Date: 20081112
  Transmission Date: 20090506
  Serious: Yes (Other)
  Sender: FDA-Public Use
  Company Number: CA-ROCHE-581314

PATIENT
  Sex: Female

DRUGS (5)
  1. PEGASYS [Suspect]
     Indication: HEPATITIS C
     Route: 058
     Dates: start: 20080207, end: 20080717
  2. EFFEXOR [Concomitant]
     Indication: DEPRESSION
     Route: 048
  3. IMOVANE [Concomitant]
     Indication: INSOMNIA
     Route: 048
  4. LYRICA [Concomitant]
     Indication: PAIN
     Route: 048
  5. TYLENOL W/ CODEINE NO. 3 [Concomitant]
     Indication: PAIN
     Route: 048

REACTIONS (5)
  - DIARRHOEA [None]
  - FATIGUE [None]
  - ILL-DEFINED DISORDER [None]
  - MASS [None]
  - NAUSEA [None]
